FAERS Safety Report 17431373 (Version 1)
Quarter: 2020Q1

REPORT INFORMATION
  Report Type: Spontaneous
  Country: US (occurrence: US)
  Receive Date: 20200218
  Receipt Date: 20200218
  Transmission Date: 20200409
  Serious: Yes (Hospitalization)
  Sender: FDA-Public Use
  Company Number: US-AMNEAL PHARMACEUTICALS-2020-AMRX-00484

PATIENT
  Age: 4 Year
  Sex: Female

DRUGS (1)
  1. PROPRANOLOL HYDROCHLORIDE IR [Suspect]
     Active Substance: PROPRANOLOL HYDROCHLORIDE
     Indication: HAEMANGIOMA CONGENITAL
     Dosage: 0.9 MILLIGRAM/KILOGRAM, BID
     Route: 065

REACTIONS (4)
  - Mental status changes [Recovered/Resolved]
  - Hypoglycaemia [Recovered/Resolved]
  - Sinus bradycardia [Recovered/Resolved]
  - Generalised tonic-clonic seizure [Recovered/Resolved]
